FAERS Safety Report 10161313 (Version 1)
Quarter: 2014Q2

REPORT INFORMATION
  Report Type: Spontaneous
  Country: US (occurrence: US)
  Receive Date: 20140509
  Receipt Date: 20140509
  Transmission Date: 20141212
  Serious: Yes (Hospitalization)
  Sender: FDA-Public Use
  Company Number: US-009507513-1405USA003352

PATIENT
  Age: 75 Year
  Sex: Female

DRUGS (4)
  1. COZAAR [Suspect]
     Route: 048
  2. JAKAFI [Suspect]
     Indication: POLYCYTHAEMIA VERA
     Dosage: 10 MG, BID
     Route: 048
  3. JAKAFI [Suspect]
     Indication: MYELOFIBROSIS
  4. SPIRONOLACTONE [Suspect]

REACTIONS (4)
  - Blood potassium increased [Not Recovered/Not Resolved]
  - Vasodilatation [Recovering/Resolving]
  - Muscle spasms [Recovering/Resolving]
  - Platelet count decreased [Unknown]
